FAERS Safety Report 17510823 (Version 1)
Quarter: 2020Q1

REPORT INFORMATION
  Report Type: Spontaneous
  Country: US (occurrence: US)
  Receive Date: 20200306
  Receipt Date: 20200306
  Transmission Date: 20200409
  Serious: No
  Sender: FDA-Public Use
  Company Number: US-HARMONY BIOSCIENCES-2019HMY00058

PATIENT
  Age: 29 Year
  Sex: Male
  Weight: 58.96 kg

DRUGS (7)
  1. PROSOM [Concomitant]
     Active Substance: ESTAZOLAM
     Dosage: 6 MG, 1X/DAY AT BEDTIME
  2. DEXTROAMPHETAMINE. [Concomitant]
     Active Substance: DEXTROAMPHETAMINE
     Dosage: 15 MG, 3X/DAY
  3. WAKIX [Suspect]
     Active Substance: PITOLISANT HYDROCHLORIDE
     Indication: NARCOLEPSY
     Dosage: 35.6 MG, 1X/DAY WHEN HE WAKES UP
     Route: 048
     Dates: start: 201911
  4. BACLOFEN. [Concomitant]
     Active Substance: BACLOFEN
     Dosage: 40 MG, 1X/DAY AT BEDTIME
  5. XYREM [Concomitant]
     Active Substance: SODIUM OXYBATE
     Dosage: 4.5 G, 1X/DAY AT BEDTIME
  6. WAKIX [Suspect]
     Active Substance: PITOLISANT HYDROCHLORIDE
     Indication: SOMNOLENCE
     Dosage: UNK
     Route: 048
     Dates: start: 20191107, end: 201911
  7. CAFFEINE. [Concomitant]
     Active Substance: CAFFEINE
     Dosage: 100 MG, 3X/DAY

REACTIONS (1)
  - Insomnia [Not Recovered/Not Resolved]

NARRATIVE: CASE EVENT DATE: 201911
